FAERS Safety Report 17389509 (Version 1)
Quarter: 2020Q1

REPORT INFORMATION
  Report Type: Spontaneous
  Country: CH (occurrence: CH)
  Receive Date: 20200207
  Receipt Date: 20200207
  Transmission Date: 20200409
  Serious: Yes (Other)
  Sender: FDA-Public Use
  Company Number: CH-009507513-2002CHE000893

PATIENT
  Age: 68 Year
  Sex: Male

DRUGS (2)
  1. PEMBROLIZUMAB. [Suspect]
     Active Substance: PEMBROLIZUMAB
     Indication: METASTATIC MALIGNANT MELANOMA
     Dosage: 2 MILLIGRAM/KILOGRAM, Q3W
  2. PEMBROLIZUMAB. [Suspect]
     Active Substance: PEMBROLIZUMAB
     Dosage: 1 MILLIGRAM/KILOGRAM

REACTIONS (3)
  - Graft versus host disease in lung [Unknown]
  - Graft versus host disease in eye [Unknown]
  - Acute graft versus host disease in skin [Unknown]

NARRATIVE: CASE EVENT DATE: 201704
